FAERS Safety Report 4679629-1 (Version None)
Quarter: 2005Q2

REPORT INFORMATION
  Report Type: 
  Country: None (occurrence: None)
  Receive Date: 20050311
  Receipt Date: 20050311
  Transmission Date: 20051028
  Serious: No
  Sender: FDA-Public Use
  Company Number: None

PATIENT
  Age: 10 Year
  Sex: Female
  Weight: 27.2158 kg

DRUGS (2)
  1. REMERON SOLTAB [Suspect]
     Indication: INITIAL INSOMNIA
     Dosage: 30 MG ONE @ HS PO
     Route: 048
  2. REMERON SOLTAB [Suspect]
     Indication: NEGATIVISM
     Dosage: 30 MG ONE @ HS PO
     Route: 048

REACTIONS (2)
  - PHARMACEUTICAL PRODUCT COMPLAINT [None]
  - VOMITING [None]
